FAERS Safety Report 9313136 (Version 1)
Quarter: 2013Q2

REPORT INFORMATION
  Report Type: Spontaneous
  Country: FR (occurrence: FR)
  Receive Date: 20130528
  Receipt Date: 20130528
  Transmission Date: 20140414
  Serious: Yes (Hospitalization)
  Sender: FDA-Public Use
  Company Number: FR-ASTRAZENECA-2013SE34814

PATIENT
  Age: 4425 Week
  Sex: Female

DRUGS (21)
  1. DIPRIVAN [Suspect]
     Indication: ANAESTHESIA
     Route: 042
     Dates: start: 20130305, end: 20130305
  2. OMEPRAZOLE [Suspect]
     Route: 048
     Dates: start: 20130227, end: 20130307
  3. MORPHINE [Suspect]
     Dates: start: 20130305, end: 20130305
  4. PARACETAMOL [Suspect]
     Indication: PAIN
     Route: 042
     Dates: start: 20130224, end: 20130225
  5. PARACETAMOL [Suspect]
     Indication: PAIN
     Route: 048
     Dates: start: 20130226, end: 20130307
  6. VANCOMYCINE [Suspect]
     Dates: start: 20130305, end: 20130305
  7. SEVORANE [Suspect]
     Indication: ANAESTHESIA
     Dates: start: 20130305, end: 20130305
  8. SUFENTANIL [Suspect]
     Indication: ANAESTHESIA
     Dates: start: 20130305, end: 20130305
  9. KETAMINE [Suspect]
     Indication: ANAESTHESIA
     Dates: start: 20130305, end: 20130305
  10. CELEBREX [Suspect]
     Indication: PAIN
     Route: 048
     Dates: start: 20130227, end: 20130307
  11. RANIPLEX [Suspect]
     Route: 048
     Dates: start: 20130305, end: 20130305
  12. AUGMENTIN [Suspect]
     Dates: start: 20130305, end: 20130305
  13. CELESTENE [Suspect]
     Dates: start: 20130305, end: 20130305
  14. EPHEDRINE [Suspect]
     Dates: start: 20130305, end: 20130305
  15. NEOSYNEPHRINE [Suspect]
     Dates: start: 20130305, end: 20130305
  16. DROLEPTAN [Suspect]
     Dates: start: 20130305, end: 20130305
  17. CATAPRESSAN [Suspect]
     Dates: start: 20130305, end: 20130305
  18. APROVEL [Concomitant]
  19. PYOSTACINE [Concomitant]
  20. BRICANYL [Concomitant]
  21. ATROVENT [Concomitant]

REACTIONS (2)
  - Hepatocellular injury [Recovered/Resolved]
  - Cholestasis [Recovered/Resolved]
